FAERS Safety Report 22630285 (Version 1)
Quarter: 2023Q2

REPORT INFORMATION
  Report Type: Spontaneous
  Country: US (occurrence: None)
  Receive Date: 20230619
  Receipt Date: 20230619
  Transmission Date: 20230721
  Serious: Yes (Hospitalization)
  Sender: FDA-Public Use
  Company Number: None

PATIENT
  Sex: Male

DRUGS (3)
  1. TOBI PODHALER [Suspect]
     Active Substance: TOBRAMYCIN
     Indication: Cystic fibrosis
     Dosage: FREQUENCY : AS DIRECTED;?4 CAPSULES BY INHALATION ROUTE 2 TIMES A DAY USE 28 DAYS ON AND 28 DAYS OFF
     Route: 055
     Dates: start: 20230620
  2. TOBI PODHALER [Suspect]
     Active Substance: TOBRAMYCIN
     Dosage: FREQUENCY : AS DIRECTED;?
     Route: 055
  3. CAYSTON INH [Concomitant]

REACTIONS (3)
  - Product use issue [None]
  - Blood potassium increased [None]
  - Wheezing [None]
